FAERS Safety Report 15934907 (Version 1)
Quarter: 2019Q1

REPORT INFORMATION
  Report Type: Report from Study
  Country: None (occurrence: PT)
  Receive Date: 20190207
  Receipt Date: 20190207
  Transmission Date: 20190417
  Serious: Yes (Death, Life-Threatening, Hospitalization)
  Sender: FDA-Public Use
  Company Number: PT-ABBVIE-18P-130-2506058-00

PATIENT
  Age: 63 Year
  Sex: Male

DRUGS (18)
  1. ABT-494 [Suspect]
     Active Substance: UPADACITINIB
     Indication: RHEUMATOID ARTHRITIS
     Route: 048
  2. LEDERTREXATE [Concomitant]
     Active Substance: METHOTREXATE
     Route: 048
     Dates: start: 20151019, end: 20160131
  3. LEDERTREXATE [Concomitant]
     Active Substance: METHOTREXATE
     Route: 048
     Dates: start: 20110929, end: 20111212
  4. LEDERTREXATE [Concomitant]
     Active Substance: METHOTREXATE
     Route: 048
     Dates: start: 20150720, end: 20151018
  5. LEDERTREXATE [Concomitant]
     Active Substance: METHOTREXATE
     Route: 048
     Dates: start: 20151019, end: 20160131
  6. OMEPRAZOL [Concomitant]
     Active Substance: OMEPRAZOLE
     Indication: PROPHYLAXIS
     Route: 048
     Dates: start: 201112, end: 20180903
  7. CILAZAPRIL + HIDROCLOROTIAZIDA [Concomitant]
     Indication: HYPERTENSION
     Dosage: 5+12.5 MG
     Route: 048
     Dates: start: 2006
  8. LEDERTREXATE [Concomitant]
     Active Substance: METHOTREXATE
     Indication: RHEUMATOID ARTHRITIS
     Route: 048
     Dates: start: 20160201, end: 20180903
  9. LEDERTREXATE [Concomitant]
     Active Substance: METHOTREXATE
     Route: 048
     Dates: start: 20111213, end: 20120521
  10. LEDERTREXATE [Concomitant]
     Active Substance: METHOTREXATE
     Route: 048
     Dates: start: 20151019, end: 20160131
  11. ADALIMUMAB [Suspect]
     Active Substance: ADALIMUMAB
     Indication: RHEUMATOID ARTHRITIS
     Route: 058
     Dates: start: 20170710, end: 20180723
  12. LEPICORTINOLO [Concomitant]
     Active Substance: PREDNISOLONE
     Indication: RHEUMATOID ARTHRITIS
     Route: 048
     Dates: start: 20151019, end: 20180903
  13. FOLIC ACID. [Concomitant]
     Active Substance: FOLIC ACID
     Indication: VITAMIN SUPPLEMENTATION
     Route: 048
     Dates: start: 200806, end: 20180903
  14. ACECLOFENAC [Concomitant]
     Active Substance: ACECLOFENAC
     Indication: RHEUMATOID ARTHRITIS
     Route: 048
     Dates: start: 201701, end: 20180903
  15. CALCIUM D [Concomitant]
     Active Substance: CALCIUM\VITAMIN D
     Indication: OSTEOPOROSIS PROPHYLAXIS
     Dosage: 1500+400 MG
     Route: 048
     Dates: start: 201201, end: 20180903
  16. ALENDRONIC ACID + COLECALCIFEROL [Concomitant]
     Indication: OSTEOPOROSIS PROPHYLAXIS
     Dosage: 70+2800 MG
     Route: 048
     Dates: start: 201205, end: 20180903
  17. INDAPAMIDE. [Concomitant]
     Active Substance: INDAPAMIDE
     Indication: HYPERTENSION
     Route: 048
     Dates: start: 2006, end: 20180903
  18. LEDERTREXATE [Concomitant]
     Active Substance: METHOTREXATE
     Route: 048
     Dates: start: 20120522, end: 20150719

REACTIONS (1)
  - Lung squamous cell carcinoma stage IV [Fatal]

NARRATIVE: CASE EVENT DATE: 20180904
